FAERS Safety Report 9890762 (Version 1)
Quarter: 2014Q1

REPORT INFORMATION
  Report Type: Spontaneous
  Country: US (occurrence: None)
  Receive Date: 20140210
  Receipt Date: 20140210
  Transmission Date: 20141002
  Serious: Yes (Other)
  Sender: FDA-Public Use
  Company Number: None

PATIENT
  Age: 51 Year
  Sex: Female

DRUGS (4)
  1. TECFIDERA [Suspect]
     Indication: MULTIPLE SCLEROSIS
     Dosage: 120MG X 7 DAYS, THEN 240MG  ?STILL TAKING
     Route: 048
  2. LASIX [Concomitant]
  3. MACRODANTIN [Concomitant]
  4. METHADONE [Concomitant]

REACTIONS (4)
  - Flushing [None]
  - Local swelling [None]
  - Swelling face [None]
  - Heart rate increased [None]
